FAERS Safety Report 15075528 (Version 1)
Quarter: 2018Q2

REPORT INFORMATION
  Report Type: Spontaneous
  Country: US (occurrence: US)
  Receive Date: 20180627
  Receipt Date: 20180627
  Transmission Date: 20180711
  Serious: Yes (Hospitalization, Other)
  Sender: FDA-Public Use
  Company Number: US-SAOL THERAPEUTICS-2018SAO00690

PATIENT
  Age: 37 Year
  Sex: Male

DRUGS (6)
  1. LIORESAL [Suspect]
     Active Substance: BACLOFEN
     Indication: MUSCLE SPASTICITY
     Dosage: 806.3 ?G, \DAY
     Route: 037
  2. VIMPAT [Suspect]
     Active Substance: LACOSAMIDE
     Indication: SEIZURE
  3. LEXAPRO [Suspect]
     Active Substance: ESCITALOPRAM OXALATE
     Route: 048
  4. LIORESAL [Suspect]
     Active Substance: BACLOFEN
     Dosage: 968.7 ?G, \DAY
     Route: 037
     Dates: start: 20141211
  5. LIORESAL [Suspect]
     Active Substance: BACLOFEN
     Dosage: 1017.7 ?G, \DAY
     Route: 037
     Dates: start: 20150326
  6. CARBAMAZEPINE. [Suspect]
     Active Substance: CARBAMAZEPINE
     Indication: SEIZURE

REACTIONS (20)
  - Seizure [Unknown]
  - Arthralgia [Unknown]
  - Headache [Unknown]
  - Lethargy [Unknown]
  - Micturition urgency [Unknown]
  - Drug withdrawal syndrome [Unknown]
  - Mood altered [Unknown]
  - Urinary retention [Unknown]
  - Dizziness [Unknown]
  - Vision blurred [Unknown]
  - Muscle twitching [Unknown]
  - Sleep disorder [Unknown]
  - Pollakiuria [Unknown]
  - Asthenia [Unknown]
  - Amnesia [Unknown]
  - Asterixis [Unknown]
  - Loss of consciousness [Unknown]
  - Somnolence [Unknown]
  - Tremor [Unknown]
  - Device damage [Unknown]

NARRATIVE: CASE EVENT DATE: 2010
